FAERS Safety Report 9844840 (Version 1)
Quarter: 2014Q1

REPORT INFORMATION
  Report Type: Spontaneous
  Country: IN (occurrence: None)
  Receive Date: 20140122
  Receipt Date: 20140122
  Transmission Date: 20141002
  Serious: Yes (Life-Threatening, Hospitalization, Other)
  Sender: FDA-Public Use
  Company Number: AUR-APL-2014-00197

PATIENT
  Age: 65 Year
  Sex: Female

DRUGS (7)
  1. ESCITALOPRAM [Suspect]
     Indication: DEPRESSION
     Dosage: 1 D
  2. LINEZOLID [Suspect]
     Indication: PNEUMONIA
     Dosage: 1 D
  3. ETOPHYLLINE (ETOFYLLINE) [Concomitant]
  4. GUAIPHENESIN (GUAIFENESIN) [Concomitant]
  5. AMBROXOL [Concomitant]
  6. AMOXICILLIN (AMOXICILLIN) [Concomitant]
  7. CLAVULANIC ACID (CLAVULANCI ACID) [Concomitant]

REACTIONS (6)
  - Somnolence [None]
  - Pneumonia [None]
  - Hypoxia [None]
  - Serotonin syndrome [None]
  - Drug interaction [None]
  - No therapeutic response [None]
